FAERS Safety Report 21652529 (Version 1)
Quarter: 2022Q4

REPORT INFORMATION
  Report Type: Spontaneous
  Country: US (occurrence: None)
  Receive Date: 20221124
  Receipt Date: 20221124
  Transmission Date: 20230112
  Serious: Yes (Hospitalization)
  Sender: FDA-Public Use
  Company Number: None

PATIENT
  Age: 2 Year
  Sex: Male
  Weight: 13.7 kg

DRUGS (3)
  1. CYCLOPHOSPHAMIDE [Suspect]
     Active Substance: CYCLOPHOSPHAMIDE
     Dates: start: 20220422, end: 20221026
  2. FILGRASTIM [Suspect]
     Active Substance: FILGRASTIM
     Dosage: OTHER STRENGTH : 204 MCG;?
     Dates: start: 20220422, end: 20221113
  3. THIOTEPA [Suspect]
     Active Substance: THIOTEPA
     Dates: start: 20220422, end: 20221023

REACTIONS (4)
  - Vomiting [None]
  - Diarrhoea [None]
  - Complication associated with device [None]
  - Dehydration [None]

NARRATIVE: CASE EVENT DATE: 20221117
